FAERS Safety Report 11585367 (Version 2)
Quarter: 2015Q4

REPORT INFORMATION
  Report Type: Spontaneous
  Country: DE (occurrence: DE)
  Receive Date: 20151001
  Receipt Date: 20151019
  Transmission Date: 20160304
  Serious: Yes (Other)
  Sender: FDA-Public Use
  Company Number: DE-JNJFOC-20150927571

PATIENT
  Sex: Female

DRUGS (2)
  1. TAVOR [Concomitant]
     Active Substance: LORAZEPAM
     Route: 065
  2. XARELTO [Suspect]
     Active Substance: RIVAROXABAN
     Indication: PRODUCT USED FOR UNKNOWN INDICATION
     Route: 048

REACTIONS (6)
  - Haemoptysis [Unknown]
  - Rash [Unknown]
  - Asthenia [Unknown]
  - Muscular weakness [Unknown]
  - Blood pressure decreased [Unknown]
  - Dyspnoea [Unknown]
